FAERS Safety Report 4472408-X (Version None)
Quarter: 2004Q4

REPORT INFORMATION
  Report Type: 
  Country: None (occurrence: None)
  Receive Date: 20041007
  Receipt Date: 20040927
  Transmission Date: 20050328
  Serious: Yes (Hospitalization)
  Sender: FDA-Public Use
  Company Number: 2004UW20363

PATIENT
  Age: 75 Year
  Sex: Male

DRUGS (2)
  1. SEROQUEL [Suspect]
     Dosage: 25 MG PO
     Route: 048
  2. SEROQUEL [Suspect]
     Dosage: 50 MG PO
     Route: 048

REACTIONS (4)
  - DISORIENTATION [None]
  - DYSARTHRIA [None]
  - FATIGUE [None]
  - SCHIZOPHRENIA [None]
